FAERS Safety Report 19588363 (Version 1)
Quarter: 2021Q3

REPORT INFORMATION
  Report Type: Spontaneous
  Country: US (occurrence: US)
  Receive Date: 20210721
  Receipt Date: 20210721
  Transmission Date: 20211014
  Serious: Yes (Other)
  Sender: FDA-Public Use
  Company Number: None

PATIENT
  Age: 76 Year
  Sex: Female
  Weight: 84.2 kg

DRUGS (8)
  1. PEPCID 40 MG ORAL TABLET, 40 MG= 1 TAB(S), PO, DAILY, [Concomitant]
  2. FUROSEMIDE 40 MG [Concomitant]
     Active Substance: FUROSEMIDE
  3. NULOSE 10 GM/15 ML SOLUTION, 10 GM= 15 ML, PO, QAM [Concomitant]
  4. DEFERASIROX. [Suspect]
     Active Substance: DEFERASIROX
     Indication: HEREDITARY HAEMOCHROMATOSIS
     Route: 048
     Dates: start: 20210611, end: 20210715
  5. VITAMIN D3 400 QD [Concomitant]
  6. SPIRONOLACTONE 100 MG [Concomitant]
  7. ENALAPRIL 5 MG QD [Concomitant]
  8. TYLENOL EXTRA STRENGTH 500 MG ORAL TABLET, 1000 MG PO, Q4H, PRN [Concomitant]

REACTIONS (5)
  - Blood creatinine increased [None]
  - Diarrhoea [None]
  - Feeling cold [None]
  - Oedema peripheral [None]
  - Glomerular filtration rate decreased [None]

NARRATIVE: CASE EVENT DATE: 20210715
